FAERS Safety Report 11223198 (Version 1)
Quarter: 2015Q2

REPORT INFORMATION
  Report Type: Spontaneous
  Country: FR (occurrence: FR)
  Receive Date: 20150626
  Receipt Date: 20150626
  Transmission Date: 20150821
  Serious: Yes (Death)
  Sender: FDA-Public Use
  Company Number: FR-ABBVIE-15P-056-1416891-00

PATIENT
  Age: 19 Year
  Sex: Male

DRUGS (4)
  1. ABILIFY [Suspect]
     Active Substance: ARIPIPRAZOLE
     Indication: PRODUCT USED FOR UNKNOWN INDICATION
     Route: 048
     Dates: start: 201211, end: 201304
  2. VALIUM [Suspect]
     Active Substance: DIAZEPAM
     Indication: SEDATION
     Route: 048
     Dates: end: 201304
  3. DEPAKINE [Suspect]
     Active Substance: VALPROATE SODIUM
     Indication: EPILEPSY
     Dosage: DOSE, FORM AND FREQUENCY UNKNOWN
     Route: 048
     Dates: end: 201304
  4. CYAMEMAZINE [Suspect]
     Active Substance: CYAMEMAZINE
     Indication: AGITATION
     Dosage: ORAL DROPS, SOLUTION 40 MILLIGRAMS/MILLILITER
     Route: 048
     Dates: end: 201304

REACTIONS (3)
  - Overdose [Fatal]
  - Death [Fatal]
  - Drug level increased [Fatal]

NARRATIVE: CASE EVENT DATE: 201304
